FAERS Safety Report 17910315 (Version 1)
Quarter: 2020Q2

REPORT INFORMATION
  Report Type: Report from Study
  Country: CN (occurrence: CN)
  Receive Date: 20200618
  Receipt Date: 20200618
  Transmission Date: 20200714
  Serious: Yes (Death)
  Sender: FDA-Public Use
  Company Number: CN-B.I. PHARMACEUTICALS,INC./RIDGEFIELD-2020-BI-030205

PATIENT

DRUGS (9)
  1. MOBIC [Suspect]
     Active Substance: MELOXICAM
     Indication: OSTEOARTHRITIS
     Dosage: PRE-OPERATION
     Route: 048
  2. MOBIC [Suspect]
     Active Substance: MELOXICAM
     Dosage: POST-OPERATION
     Route: 048
  3. MOBIC [Suspect]
     Active Substance: MELOXICAM
     Dosage: POST-OPERATION
     Route: 048
  4. FENTANYL. [Concomitant]
     Active Substance: FENTANYL
     Indication: PRODUCT USED FOR UNKNOWN INDICATION
     Route: 042
  5. FENTANYL. [Concomitant]
     Active Substance: FENTANYL
     Route: 042
  6. TROPISETRON MESYLATE [Concomitant]
     Indication: ANALGESIC THERAPY
     Dosage: BY INTRAVENOUS INJECTION AS A LOADING DOSE OF ANALGESIA
     Route: 042
  7. MOBIC [Suspect]
     Active Substance: MELOXICAM
     Dosage: POST-OPERATION
     Route: 048
  8. MOBIC [Suspect]
     Active Substance: MELOXICAM
     Dosage: POST-OPERATION
     Route: 048
  9. TRAMADOL. [Concomitant]
     Active Substance: TRAMADOL
     Indication: PRODUCT USED FOR UNKNOWN INDICATION
     Route: 065

REACTIONS (1)
  - Accidental death [Fatal]
